FAERS Safety Report 17166429 (Version 1)
Quarter: 2019Q4

REPORT INFORMATION
  Report Type: Spontaneous
  Country: US (occurrence: US)
  Receive Date: 20191217
  Receipt Date: 20191217
  Transmission Date: 20200122
  Serious: No
  Sender: FDA-Public Use
  Company Number: US-PFIZER INC-2019543718

PATIENT
  Age: 65 Year
  Sex: Male
  Weight: 80.7 kg

DRUGS (2)
  1. CADUET [Suspect]
     Active Substance: AMLODIPINE BESYLATE\ATORVASTATIN CALCIUM
     Indication: BLOOD CHOLESTEROL
     Dosage: UNK, (AMLODIPINE BESILATE-10 MG/ ATORVASTATIN CALCIUM-25 MG)
  2. LIPITOR [Suspect]
     Active Substance: ATORVASTATIN CALCIUM
     Dosage: 25 MG, UNK

REACTIONS (1)
  - Hepatic enzyme increased [Unknown]
